FAERS Safety Report 4523762-1 (Version None)
Quarter: 2004Q4

REPORT INFORMATION
  Report Type: 
  Country: None (occurrence: None)
  Receive Date: 20041119
  Receipt Date: 20040927
  Transmission Date: 20050328
  Serious: No
  Sender: FDA-Public Use
  Company Number: PHEH2004US09636

PATIENT
  Age: 59 Year
  Sex: Female
  Weight: 48.5 kg

DRUGS (2)
  1. ZELNORM [Suspect]
     Indication: CONSTIPATION
     Dosage: 6 MG, BID, ORAL
     Route: 048
     Dates: start: 20040831, end: 20040906
  2. VIVELLE-DOT [Concomitant]

REACTIONS (5)
  - ABDOMINAL DISTENSION [None]
  - ARTHRALGIA [None]
  - BACK PAIN [None]
  - CONSTIPATION [None]
  - MOBILITY DECREASED [None]
